FAERS Safety Report 22370036 (Version 1)
Quarter: 2023Q2

REPORT INFORMATION
  Report Type: Spontaneous
  Country: US (occurrence: US)
  Receive Date: 20230526
  Receipt Date: 20230526
  Transmission Date: 20230721
  Serious: Yes (Hospitalization, Other)
  Sender: FDA-Public Use
  Company Number: US-SA-2023SA158314

PATIENT
  Age: 72 Year
  Sex: Female

DRUGS (1)
  1. LEFLUNOMIDE [Suspect]
     Active Substance: LEFLUNOMIDE
     Indication: Rheumatoid arthritis

REACTIONS (10)
  - Ventricular tachycardia [Unknown]
  - Colitis ulcerative [Recovering/Resolving]
  - Diarrhoea [Recovering/Resolving]
  - Electrolyte imbalance [Recovering/Resolving]
  - Abdominal pain lower [Recovering/Resolving]
  - Haematochezia [Recovering/Resolving]
  - Mucosal inflammation [Recovering/Resolving]
  - Erythema [Recovering/Resolving]
  - Large intestinal ulcer [Recovering/Resolving]
  - Defaecation urgency [Recovering/Resolving]
